FAERS Safety Report 8318873-9 (Version None)
Quarter: 2012Q2

REPORT INFORMATION
  Report Type: 
  Country: None (occurrence: None)
  Receive Date: 20120426
  Receipt Date: 20120426
  Transmission Date: 20120825
  Serious: Yes (Death)
  Sender: FDA-Public Use
  Company Number: None

PATIENT
  Age: 17 Year
  Sex: Female
  Weight: 42.3 kg

DRUGS (3)
  1. WELLBUTRIN [Concomitant]
  2. SPRINTEC [Suspect]
     Indication: CONTRACEPTION
     Dosage: .25/.035MG TABLET ONE A DAY ORAL
     Route: 048
     Dates: start: 20110112, end: 20120114
  3. SPRINTEC [Suspect]
     Indication: DYSMENORRHOEA
     Dosage: .25/.035MG TABLET ONE A DAY ORAL
     Route: 048
     Dates: start: 20110112, end: 20120114

REACTIONS (10)
  - FALL [None]
  - CARDIAC ARREST [None]
  - CEREBRAL HAEMORRHAGE [None]
  - HAEMORRHAGE [None]
  - ABDOMINAL PAIN UPPER [None]
  - NECK PAIN [None]
  - HEAD INJURY [None]
  - EYE MOVEMENT DISORDER [None]
  - SKIN DISCOLOURATION [None]
  - CEREBRAL DISORDER [None]
